FAERS Safety Report 6147426-6 (Version None)
Quarter: 2009Q2

REPORT INFORMATION
  Report Type: 
  Country: None (occurrence: None)
  Receive Date: 20090402
  Receipt Date: 20090318
  Transmission Date: 20091009
  Serious: Yes (Other)
  Sender: FDA-Public Use
  Company Number: 2009S1004719

PATIENT

DRUGS (11)
  1. LINEZOLID [Suspect]
  2. FENTANYL-100 [Suspect]
  3. CIPROFLOXACIN [Concomitant]
  4. DICLOFENAC SODIUM [Concomitant]
  5. DIGOXIN [Concomitant]
  6. DOMPERIDONE [Concomitant]
  7. MIDAZOLAM HCL [Concomitant]
  8. MILRINONE [Concomitant]
  9. MORPHINE [Concomitant]
  10. OMEPRAZOLE [Concomitant]
  11. RIFAMPICIN [Concomitant]

REACTIONS (4)
  - AGITATION [None]
  - DRUG INTERACTION [None]
  - HYPOTONIA [None]
  - SEROTONIN SYNDROME [None]
